FAERS Safety Report 8657671 (Version 2)
Quarter: 2012Q4

REPORT INFORMATION
  Report Type: 
  Country: US (occurrence: US)
  Receive Date: 20120710
  Receipt Date: 20121009
  Transmission Date: 20130627
  Serious: No
  Sender: FDA-Public Use
  Company Number: US-ASTRAZENECA-2012SE44856

PATIENT
  Age: 62 Year
  Sex: Female
  Weight: 301 kg

DRUGS (1)
  1. NEXIUM [Suspect]
     Indication: GASTROOESOPHAGEAL REFLUX DISEASE
     Route: 048
     Dates: start: 20090327

REACTIONS (2)
  - Gastrooesophageal reflux disease [Unknown]
  - Drug dose omission [Unknown]
